FAERS Safety Report 9276390 (Version 1)
Quarter: 2013Q2

REPORT INFORMATION
  Report Type: Report from Study
  Country: US (occurrence: US)
  Receive Date: 20130507
  Receipt Date: 20130507
  Transmission Date: 20140414
  Serious: Yes (Hospitalization)
  Sender: FDA-Public Use
  Company Number: US-GLAXOSMITHKLINE-A1022570A

PATIENT
  Age: 62 Year
  Sex: Male
  Weight: 87.7 kg

DRUGS (6)
  1. LAPATINIB [Suspect]
     Indication: OESOPHAGEAL CARCINOMA
     Dosage: 1000MG PER DAY
     Route: 048
  2. CARBOPLATIN [Suspect]
     Indication: OESOPHAGEAL CARCINOMA
     Route: 042
  3. TAXOL [Suspect]
     Indication: OESOPHAGEAL CARCINOMA
     Route: 042
  4. LOMOTIL [Concomitant]
     Route: 048
  5. LIPITOR [Concomitant]
     Dosage: 40MG PER DAY
     Route: 048
  6. NORVASC [Concomitant]
     Dosage: 5MG PER DAY
     Route: 048

REACTIONS (1)
  - Febrile neutropenia [Recovered/Resolved]
